FAERS Safety Report 5238062-4 (Version None)
Quarter: 2007Q1

REPORT INFORMATION
  Report Type: 
  Country: None (occurrence: None)
  Receive Date: 20070215
  Receipt Date: 20070205
  Transmission Date: 20070707
  Serious: Yes (Other)
  Sender: FDA-Public Use
  Company Number: US-JNJFOC-20061204467

PATIENT
  Sex: Female

DRUGS (10)
  1. REMICADE [Suspect]
  2. REMICADE [Suspect]
     Indication: RHEUMATOID ARTHRITIS
  3. VITAMIN B6 [Concomitant]
  4. MTX [Concomitant]
     Indication: RHEUMATOID ARTHRITIS
  5. PREMARIN [Concomitant]
  6. SYNTHROID [Concomitant]
  7. CENTRUM SILVER [Concomitant]
  8. CALCIUM [Concomitant]
  9. VITAMIN E [Concomitant]
  10. VITAMIN D [Concomitant]

REACTIONS (2)
  - RASH [None]
  - VISUAL DISTURBANCE [None]
